FAERS Safety Report 23055986 (Version 1)
Quarter: 2023Q4

REPORT INFORMATION
  Report Type: Spontaneous
  Country: CN (occurrence: None)
  Receive Date: 20231011
  Receipt Date: 20231011
  Transmission Date: 20240109
  Serious: Yes (Other)
  Sender: FDA-Public Use
  Company Number: 2023A229977

PATIENT
  Age: 58 Year
  Sex: Male

DRUGS (5)
  1. OLAPARIB [Suspect]
     Active Substance: OLAPARIB
     Indication: Cholangiocarcinoma
     Route: 048
     Dates: start: 202002, end: 20200930
  2. LENVATINIB [Concomitant]
     Active Substance: LENVATINIB
     Dates: start: 201812, end: 20200930
  3. PEMBROLIZUMAB [Concomitant]
     Active Substance: PEMBROLIZUMAB
     Dosage: 200MG PER 3 WEEKS FOR 18 MONTHS
     Dates: start: 201812, end: 20200930
  4. TORIPALIMAB [Concomitant]
     Active Substance: TORIPALIMAB
     Dates: start: 202002, end: 20200930
  5. IPILIMUMAB [Concomitant]
     Active Substance: IPILIMUMAB
     Dates: start: 202002, end: 20200930

REACTIONS (1)
  - Metastasis [Unknown]

NARRATIVE: CASE EVENT DATE: 20200901
